FAERS Safety Report 5318495-8 (Version None)
Quarter: 2007Q2

REPORT INFORMATION
  Report Type: 
  Country: None (occurrence: None)
  Receive Date: 20070501
  Receipt Date: 20070420
  Transmission Date: 20071010
  Serious: Yes (Hospitalization)
  Sender: FDA-Public Use
  Company Number: 2007-01034

PATIENT
  Age: 67 Year
  Sex: Male
  Weight: 33.5662 kg

DRUGS (3)
  1. VELCADE [Suspect]
     Indication: MYELOFIBROSIS
     Dosage: 1.30 MG/M2, INTRAVENOUS
     Route: 042
     Dates: start: 20070326, end: 20070402
  2. CIPROFLOXACIN [Concomitant]
  3. ACETYLCYSTEINE [Concomitant]

REACTIONS (9)
  - ANAEMIA [None]
  - CHRONIC OBSTRUCTIVE PULMONARY DISEASE [None]
  - FLUID RETENTION [None]
  - HEPATOSPLENOMEGALY [None]
  - OEDEMA PERIPHERAL [None]
  - OXYGEN SATURATION DECREASED [None]
  - PLEURAL EFFUSION [None]
  - PULMONARY CONGESTION [None]
  - THROMBOCYTOPENIA [None]
